FAERS Safety Report 12643591 (Version 3)
Quarter: 2017Q4

REPORT INFORMATION
  Report Type: Report from Study
  Country: BE (occurrence: BE)
  Receive Date: 20160811
  Receipt Date: 20171117
  Transmission Date: 20180320
  Serious: Yes (Hospitalization)
  Sender: FDA-Public Use
  Company Number: PHHO2013BE017862

PATIENT
  Age: 79 Year
  Sex: Female
  Weight: 50 kg

DRUGS (4)
  1. LOPERAMIDE [Concomitant]
     Active Substance: LOPERAMIDE
     Indication: GASTROENTERITIS
     Dosage: 2 MG, PRN
     Route: 048
     Dates: start: 20130515, end: 20130518
  2. OFATUMUMAB [Suspect]
     Active Substance: OFATUMUMAB
     Indication: NON-HODGKIN^S LYMPHOMA
     Dosage: 1000 MG, CYC (8000)
     Route: 042
     Dates: start: 20121107
  3. ENTEROL//FURAZOLIDONE [Concomitant]
     Indication: GASTROENTERITIS
     Dosage: 250 MG, QID
     Route: 048
     Dates: start: 20130403, end: 20130513
  4. BENDAMUSTINE [Suspect]
     Active Substance: BENDAMUSTINE
     Indication: NON-HODGKIN^S LYMPHOMA
     Dosage: 90 MG/M2, CYC (2377.16)
     Route: 042
     Dates: start: 20121107

REACTIONS (1)
  - Gastroenteritis [Recovered/Resolved]

NARRATIVE: CASE EVENT DATE: 20130513
